FAERS Safety Report 5731633-8 (Version None)
Quarter: 2008Q2

REPORT INFORMATION
  Report Type: 
  Country: None (occurrence: None)
  Receive Date: 20080508
  Receipt Date: 20080430
  Transmission Date: 20081010
  Serious: Yes (Other)
  Sender: FDA-Public Use
  Company Number: PHHY2008BR06904

PATIENT
  Age: 43 Year
  Sex: Male
  Weight: 65 kg

DRUGS (5)
  1. TRILEPTAL [Suspect]
     Indication: BIPOLAR DISORDER
     Dosage: 1 TABLET AT NIGHT
     Dates: start: 20080429
  2. TRILEPTAL [Suspect]
     Dosage: 300 MG, 2 TABLET/DAY
     Route: 048
     Dates: start: 20080101
  3. CARBOLITHIUM [Concomitant]
     Indication: BIPOLAR DISORDER
     Dosage: 2 TABLET /DAY
     Route: 048
     Dates: start: 20080101
  4. CLONAZEPAM [Concomitant]
     Dosage: 1 OR 2 TABLET/DAY
     Dates: start: 20080101
  5. BACH FLOWER [Concomitant]
     Dosage: 8 DF, BID
     Dates: start: 20080428

REACTIONS (11)
  - ABDOMINAL PAIN UPPER [None]
  - ABNORMAL BEHAVIOUR [None]
  - ANXIETY [None]
  - CHEST PAIN [None]
  - DISORIENTATION [None]
  - DRUG INEFFECTIVE [None]
  - FEELING OF DESPAIR [None]
  - LETHARGY [None]
  - MUSCLE DISORDER [None]
  - PANIC ATTACK [None]
  - SLEEP DISORDER [None]
